FAERS Safety Report 8395193-8 (Version None)
Quarter: 2012Q2

REPORT INFORMATION
  Report Type: 
  Country: None (occurrence: None)
  Receive Date: 20120530
  Receipt Date: 20120518
  Transmission Date: 20120825
  Serious: Yes (Hospitalization)
  Sender: FDA-Public Use
  Company Number: GB-MEDIMMUNE-MEDI-0015304

PATIENT
  Age: 250 Day
  Sex: Female

DRUGS (5)
  1. AQUADEKS [Concomitant]
     Indication: CYSTIC FIBROSIS
     Route: 048
  2. SYNAGIS [Suspect]
     Indication: ANTIVIRAL PROPHYLAXIS
     Route: 030
     Dates: start: 20111101
  3. DNASE [Concomitant]
     Indication: CYSTIC FIBROSIS
     Dosage: 2.5 MG
     Route: 055
  4. FLUCLOXACILLIN [Concomitant]
  5. PANCREATIN TRIPLE STRENGTH CAP [Concomitant]
     Indication: CYSTIC FIBROSIS
     Route: 048

REACTIONS (7)
  - LOWER RESPIRATORY TRACT INFECTION [None]
  - COUGH [None]
  - WHEEZING [None]
  - RESPIRATORY SYNCYTIAL VIRUS BRONCHIOLITIS [None]
  - DYSPNOEA [None]
  - PYREXIA [None]
  - FEEDING DISORDER OF INFANCY OR EARLY CHILDHOOD [None]
